FAERS Safety Report 9241805 (Version 1)
Quarter: 2013Q2

REPORT INFORMATION
  Report Type: Spontaneous
  Country: US (occurrence: US)
  Receive Date: 20130419
  Receipt Date: 20130419
  Transmission Date: 20140414
  Serious: No
  Sender: FDA-Public Use
  Company Number: US-009507513-1304USA006766

PATIENT
  Age: 62 Year
  Sex: Female

DRUGS (1)
  1. SAPHRIS [Suspect]
     Dosage: 5 MG, HS
     Route: 060
     Dates: start: 201104

REACTIONS (2)
  - Dystonia [Recovered/Resolved]
  - Weight increased [Recovered/Resolved]
